FAERS Safety Report 9162275 (Version 5)
Quarter: 2014Q1

REPORT INFORMATION
  Report Type: Spontaneous
  Country: GB (occurrence: None)
  Receive Date: 20130215
  Receipt Date: 20140224
  Transmission Date: 20141002
  Serious: Yes (Life-Threatening, Hospitalization)
  Sender: FDA-Public Use
  Company Number: SYM-2013-00505

PATIENT
  Age: 73 Year
  Sex: Male

DRUGS (13)
  1. 5-FU [Suspect]
     Indication: COLORECTAL CANCER METASTATIC
     Dosage: EVERY CYCLE, INTRAVENOUS (NOT OTHERWISE SPECIFIED)
     Route: 040
     Dates: start: 20120912, end: 20120912
  2. LEUCOVORIN [Suspect]
     Indication: COLORECTAL CANCER METASTATIC
     Dosage: 800 MG, EVERY OTHER WEEK, INTRAVENOUS (NOT OTHERWISE SPECIFIED)?
     Route: 042
     Dates: start: 20120912, end: 20120912
  3. IRINOTECAN [Suspect]
     Indication: COLORECTAL CANCER METASTATIC
     Dosage: 360 MG, EVERY OTHER WEEK, INTRAVENOUS (NOT OTHERWISE SPECIFIED)?
     Route: 042
     Dates: start: 20120912, end: 20120912
  4. AFLIBERCEPT [Suspect]
     Indication: COLORECTAL CANCER METASTATIC
     Dosage: 325 MG, EVERY OTHER WEEK, INTRAVENOUS (NOT OTHERWISE SPECIFIED)?
     Route: 042
     Dates: start: 20120912, end: 20120912
  5. LANSOPRAZOLE (LANSOPRAZOLE) (LANSOPRAZOLE) [Concomitant]
  6. CO-CODAMOL (PANADEINE CO) (CODEINE PHOSPHATE, PARACETAMOL) [Concomitant]
  7. MOVICOL [Concomitant]
  8. LOPERAMIDE (LOPERAMIDE) (LOPERAMIDE) [Concomitant]
  9. RECTOGESIC (GLYCERYL TRINITRATE) (GLYCERYL TRINITRATE) [Concomitant]
  10. ANTIBIOTICS (ANTIBIOTICS) [Concomitant]
  11. LACTULOSE (LACTULOSE) (LACTULOSE) [Concomitant]
  12. ANUSOL (ANUSOL /00117301/) (BISMUTH SUBGALLATE, ZINC OXIDE, BORIC ACID, BISMUTH HYDROXIDE, MYROXYLON BALSAMUM VAR. PEREIRAE BALSAM) [Concomitant]
  13. DOMPERIDONE (DOMPRIDONE) (DOMPERIDONE) [Concomitant]

REACTIONS (5)
  - Malaise [None]
  - Pleuritic pain [None]
  - Respiratory failure [None]
  - Lung infection [None]
  - Neutrophil count decreased [None]
